FAERS Safety Report 23309381 (Version 1)
Quarter: 2023Q4

REPORT INFORMATION
  Report Type: Report from Study
  Country: CA (occurrence: CA)
  Receive Date: 20231218
  Receipt Date: 20231218
  Transmission Date: 20240110
  Serious: Yes (Other)
  Sender: FDA-Public Use
  Company Number: CA-TAKEDA-2023TUS084325

PATIENT
  Sex: Female

DRUGS (5)
  1. VEDOLIZUMAB [Suspect]
     Active Substance: VEDOLIZUMAB
     Indication: Colitis ulcerative
     Dosage: 300 MILLIGRAM
     Route: 042
     Dates: start: 20230526
  2. VEDOLIZUMAB [Suspect]
     Active Substance: VEDOLIZUMAB
     Dosage: 300 MILLIGRAM
     Route: 042
     Dates: end: 20231027
  3. PREDNISONE [Concomitant]
     Active Substance: PREDNISONE
     Dosage: UNK
     Dates: start: 20230508
  4. MESALAMINE [Concomitant]
     Active Substance: MESALAMINE
     Dosage: UNK
     Dates: start: 20150101
  5. Salofalk [Concomitant]
     Dosage: UNK
     Dates: start: 20180101

REACTIONS (8)
  - Gastrointestinal carcinoma [Unknown]
  - Kidney infection [Unknown]
  - Drug ineffective [Not Recovered/Not Resolved]
  - Faeces soft [Unknown]
  - Malaise [Unknown]
  - Haemoglobin abnormal [Unknown]
  - Abdominal pain [Unknown]
  - Fatigue [Unknown]
